FAERS Safety Report 5342190-2 (Version None)
Quarter: 2007Q2

REPORT INFORMATION
  Report Type: 
  Country: None (occurrence: None)
  Receive Date: 20070601
  Receipt Date: 20070531
  Transmission Date: 20071010
  Serious: Yes (Hospitalization)
  Sender: FDA-Public Use
  Company Number: B0473264A

PATIENT
  Age: 45 Year
  Sex: Female

DRUGS (2)
  1. CLAMOXYL [Suspect]
     Indication: TOOTH ABSCESS
     Dosage: 1000MG TWICE PER DAY
     Route: 048
     Dates: start: 20070309, end: 20070309
  2. LUTENYL [Concomitant]
     Indication: CONTRACEPTION

REACTIONS (6)
  - ANAPHYLACTIC SHOCK [None]
  - BLOOD PRESSURE DECREASED [None]
  - GENERALISED OEDEMA [None]
  - NAUSEA [None]
  - PAINFUL RESPIRATION [None]
  - PARAESTHESIA ORAL [None]
